FAERS Safety Report 9457346 (Version 1)
Quarter: 2013Q3

REPORT INFORMATION
  Report Type: Spontaneous
  Country: IT (occurrence: IT)
  Receive Date: 20130814
  Receipt Date: 20130814
  Transmission Date: 20140515
  Serious: Yes (Disabling)
  Sender: FDA-Public Use
  Company Number: PHHY2013IT086568

PATIENT
  Age: 72 Year
  Sex: Male

DRUGS (16)
  1. ZOMETA [Suspect]
     Indication: PLASMA CELL MYELOMA
     Dosage: UNK UKN, UNK
     Route: 042
     Dates: start: 20120201, end: 20130203
  2. DEXAMETHASONE [Concomitant]
     Dosage: UNK UKN, UNK
  3. DEXAMETHASONE [Concomitant]
     Dosage: UNK
     Dates: start: 20130513
  4. BISOPROLOL [Concomitant]
     Dosage: 2.5 MG, UNK
  5. VELCADE [Concomitant]
     Dosage: UNK UKN, UNK
  6. VELCADE [Concomitant]
     Dosage: UNK
     Dates: start: 20130513
  7. HUMALOG [Concomitant]
     Dosage: UNK UKN, UNK
  8. LANTUS [Concomitant]
     Dosage: UNK UKN, UNK
  9. DIBASE [Concomitant]
     Dosage: UNK UKN, UNK
  10. CRESTOR [Concomitant]
     Dosage: UNK UKN, UNK
  11. SOLDESAM [Concomitant]
     Dosage: UNK UKN, UNK
  12. ZYLORIC [Concomitant]
     Dosage: UNK UKN, UNK
  13. CLEXAN [Concomitant]
     Dosage: UNK UKN, UNK
  14. ANTRA [Concomitant]
     Dosage: UNK UKN, UNK
  15. NOVALGINA [Concomitant]
     Dosage: UNK UKN, UNK
  16. CARDIOASPIRIN [Concomitant]
     Dosage: UNK UKN, UNK

REACTIONS (4)
  - Osteonecrosis of jaw [Unknown]
  - Exposed bone in jaw [Unknown]
  - Oedema mucosal [Unknown]
  - Pain [Unknown]
